FAERS Safety Report 9462147 (Version 1)
Quarter: 2013Q3

REPORT INFORMATION
  Report Type: Spontaneous
  Country: US (occurrence: None)
  Receive Date: 20130815
  Receipt Date: 20130815
  Transmission Date: 20140515
  Serious: Yes (Hospitalization)
  Sender: FDA-Public Use
  Company Number: None

PATIENT
  Age: 61 Year
  Sex: Female
  Weight: 106.1 kg

DRUGS (18)
  1. DIGOXIN [Suspect]
     Indication: ATRIAL FIBRILLATION
     Dosage: 250MCG  DAILY  PO?RECENT
     Route: 048
  2. PROVENTIL [Concomitant]
  3. ASPIRIN [Concomitant]
  4. ASPIRIN [Concomitant]
  5. LEVEMIR [Concomitant]
  6. ALLEGRA [Concomitant]
  7. LOPRESSOR [Concomitant]
  8. COLCRYS [Concomitant]
  9. VIT D3 [Concomitant]
  10. AMLODIPINE [Concomitant]
  11. ATORVASTATIN [Concomitant]
  12. GLIPIZIDE [Concomitant]
  13. SINGULAIR [Concomitant]
  14. SERTRALIN [Concomitant]
  15. QVAR [Concomitant]
  16. HYDROCHLOROQUINE [Concomitant]
  17. ZESTORETIC [Concomitant]
  18. LOSARTAN/HCTZ 100/25 [Concomitant]

REACTIONS (4)
  - Feeling abnormal [None]
  - Cardiac flutter [None]
  - Chest pain [None]
  - Toxicity to various agents [None]
